FAERS Safety Report 7794118-3 (Version None)
Quarter: 2011Q4

REPORT INFORMATION
  Report Type: 
  Country: None (occurrence: None)
  Receive Date: 20111004
  Receipt Date: 20110929
  Transmission Date: 20120403
  Serious: Yes (Death, Hospitalization)
  Sender: FDA-Public Use
  Company Number: JP-JNJFOC-20110811244

PATIENT
  Sex: Female
  Weight: 49 kg

DRUGS (10)
  1. DOXORUBICIN HCL [Suspect]
     Dosage: CYCLE 4
     Route: 042
     Dates: start: 20100420, end: 20100420
  2. LANSOPRAZOLE [Concomitant]
     Indication: PROPHYLAXIS
     Route: 048
  3. DOXORUBICIN HCL [Suspect]
     Dosage: CYCLE 3
     Route: 042
     Dates: start: 20100325, end: 20100325
  4. FENTANYL-100 [Concomitant]
     Indication: CANCER PAIN
     Route: 062
     Dates: start: 20100208
  5. DOXORUBICIN HCL [Suspect]
     Indication: OVARIAN CANCER RECURRENT
     Dosage: CYCLE 1
     Route: 042
     Dates: start: 20100127, end: 20100127
  6. DOXORUBICIN HCL [Suspect]
     Dosage: CYCLE 2
     Route: 042
     Dates: start: 20100223, end: 20100223
  7. LENDORMIN D [Concomitant]
     Route: 048
     Dates: start: 20100518, end: 20100609
  8. GABAPENTIN [Concomitant]
     Route: 048
     Dates: start: 20100308, end: 20100507
  9. LOXONIN [Concomitant]
     Indication: CANCER PAIN
     Route: 048
     Dates: end: 20100208
  10. PYDOXAL [Concomitant]
     Indication: PROPHYLAXIS
     Route: 048
     Dates: start: 20100127, end: 20100507

REACTIONS (3)
  - OVARIAN CANCER RECURRENT [None]
  - LUNG INFECTION [None]
  - WHITE BLOOD CELL COUNT DECREASED [None]
